FAERS Safety Report 4730114-8 (Version None)
Quarter: 2005Q3

REPORT INFORMATION
  Report Type: 
  Country: None (occurrence: None)
  Receive Date: 20050728
  Receipt Date: 20050714
  Transmission Date: 20060218
  Serious: Yes (Other)
  Sender: FDA-Public Use
  Company Number: 2005S1000220

PATIENT
  Age: 29 Year
  Sex: Female

DRUGS (2)
  1. ACITRETIN [Suspect]
     Dosage: VAG
     Route: 067
     Dates: start: 20030101
  2. FENPROPOREX                   (FENPROPOREX) [Suspect]
     Dosage: TRPL
     Route: 064
     Dates: end: 20031201

REACTIONS (4)
  - CAESAREAN SECTION [None]
  - PREGNANCY [None]
  - PREMATURE LABOUR [None]
  - TRANSMISSION OF DRUG VIA SEMEN [None]
